FAERS Safety Report 13873086 (Version 1)
Quarter: 2017Q3

REPORT INFORMATION
  Report Type: Spontaneous
  Country: JP (occurrence: JP)
  Receive Date: 20170816
  Receipt Date: 20170816
  Transmission Date: 20171127
  Serious: Yes (Hospitalization)
  Sender: FDA-Public Use
  Company Number: JP-ELI_LILLY_AND_COMPANY-JP201708005069

PATIENT
  Age: 60 Year
  Sex: Male

DRUGS (1)
  1. ERBITUX [Suspect]
     Active Substance: CETUXIMAB
     Indication: TONSIL CANCER
     Dosage: 250 MG/M2, UNKNOWN
     Route: 041
     Dates: start: 20170621, end: 20170726

REACTIONS (2)
  - Portal venous gas [Unknown]
  - Gastrointestinal necrosis [Recovering/Resolving]

NARRATIVE: CASE EVENT DATE: 2017
